FAERS Safety Report 8762499 (Version 7)
Quarter: 2012Q4

REPORT INFORMATION
  Report Type: 
  Country: US (occurrence: US)
  Receive Date: 20120830
  Receipt Date: 20121217
  Transmission Date: 20130627
  Serious: No
  Sender: FDA-Public Use
  Company Number: US-PFIZER INC-2012208280

PATIENT
  Age: 63 Year
  Sex: Male

DRUGS (5)
  1. INLYTA [Suspect]
     Indication: DISSEMINATED MALIGNANT NEOPLASM
     Dosage: 7 mg, 2x/day
     Route: 048
     Dates: start: 20120816
  2. INLYTA [Suspect]
     Indication: RENAL CELL CANCER
     Dosage: 5 mg, UNK
  3. INLYTA [Suspect]
     Dosage: 1 mg, UNK
  4. INLYTA [Suspect]
     Dosage: 7 mg, 2x/day
     Dates: start: 20121126
  5. METOPROLOL [Concomitant]
     Dosage: UNK

REACTIONS (12)
  - Dysphonia [Not Recovered/Not Resolved]
  - Paraesthesia oral [Not Recovered/Not Resolved]
  - Glossodynia [Not Recovered/Not Resolved]
  - Decreased appetite [Unknown]
  - Weight decreased [Unknown]
  - Fatigue [Not Recovered/Not Resolved]
  - Diarrhoea [Recovering/Resolving]
  - Cough [Unknown]
  - Gastrooesophageal reflux disease [Unknown]
  - Hypertension [Unknown]
  - Hyperaesthesia [Unknown]
  - Visual impairment [Unknown]
